FAERS Safety Report 18389186 (Version 1)
Quarter: 2020Q4

REPORT INFORMATION
  Report Type: Spontaneous
  Country: FR (occurrence: FR)
  Receive Date: 20201016
  Receipt Date: 20201016
  Transmission Date: 20210114
  Serious: Yes (Hospitalization)
  Sender: FDA-Public Use
  Company Number: FR-SUN PHARMACEUTICAL INDUSTRIES LTD-2020RR-264360

PATIENT
  Age: 78 Year
  Sex: Male
  Weight: 90 kg

DRUGS (4)
  1. DULOXETINE (CHLORHYDRATE DE) [Concomitant]
     Active Substance: DULOXETINE
     Indication: DEPRESSION
     Dosage: 60 MILLIGRAM, DAILY
     Route: 048
  2. MIANSERIN [Suspect]
     Active Substance: MIANSERIN
     Indication: ANXIETY
     Dosage: 40 MILLIGRAM, DAILY
     Route: 048
     Dates: start: 20200819, end: 20200831
  3. QUETIAPINE. [Suspect]
     Active Substance: QUETIAPINE
     Indication: BEHAVIOUR DISORDER
     Dosage: 50 MILLIGRAM, DAILY
     Route: 048
     Dates: start: 20200819, end: 20200824
  4. QUETIAPINE. [Suspect]
     Active Substance: QUETIAPINE
     Dosage: 100 MILLIGRAM, DAILY
     Route: 048
     Dates: start: 20200824

REACTIONS (2)
  - Libido increased [Recovering/Resolving]
  - Sexual abuse [Recovering/Resolving]

NARRATIVE: CASE EVENT DATE: 20200901
